FAERS Safety Report 11683387 (Version 1)
Quarter: 2015Q4

REPORT INFORMATION
  Report Type: Spontaneous
  Country: US (occurrence: US)
  Receive Date: 20151029
  Receipt Date: 20151029
  Transmission Date: 20160304
  Serious: No
  Sender: FDA-Public Use
  Company Number: US-MYLANLABS-2015M1029472

PATIENT
  Sex: Male

DRUGS (3)
  1. TACROLIMUS CAPSULES [Suspect]
     Active Substance: TACROLIMUS
     Indication: TRANSPLANT
     Dosage: 1 MG, UNK
  2. TACROLIMUS CAPSULES [Suspect]
     Active Substance: TACROLIMUS
     Indication: TRANSPLANT
     Dosage: 0.5 MG, UNK
  3. TACROLIMUS CAPSULES [Suspect]
     Active Substance: TACROLIMUS
     Indication: TRANSPLANT
     Dosage: 2 MG, UNK

REACTIONS (1)
  - Drug level decreased [Recovered/Resolved]

NARRATIVE: CASE EVENT DATE: 201507
